FAERS Safety Report 17347796 (Version 1)
Quarter: 2020Q1

REPORT INFORMATION
  Report Type: Report from Study
  Country: US (occurrence: US)
  Receive Date: 20200129
  Receipt Date: 20200129
  Transmission Date: 20200409
  Serious: No
  Sender: FDA-Public Use
  Company Number: US-EXELIXIS-CABO-19025407

PATIENT
  Age: 68 Year
  Sex: Male

DRUGS (1)
  1. CABOMETYX [Suspect]
     Active Substance: CABOZANTINIB S-MALATE
     Indication: RENAL CELL CARCINOMA
     Dosage: 60 MG, QD (3 AM WITHOUT FOOD)
     Dates: start: 20191025

REACTIONS (3)
  - Diarrhoea [Unknown]
  - Ejection fraction decreased [Recovered/Resolved]
  - Glossodynia [Unknown]

NARRATIVE: CASE EVENT DATE: 201912
